FAERS Safety Report 17167582 (Version 3)
Quarter: 2020Q1

REPORT INFORMATION
  Report Type: Spontaneous
  Country: BR (occurrence: BR)
  Receive Date: 20191217
  Receipt Date: 20200213
  Transmission Date: 20200409
  Serious: Yes (Other)
  Sender: FDA-Public Use
  Company Number: BR-GLAXOSMITHKLINE-BR2019AMR225822

PATIENT
  Sex: Female

DRUGS (3)
  1. RELVAR ELLIPTA [Suspect]
     Active Substance: FLUTICASONE FUROATE\VILANTEROL TRIFENATATE
     Indication: ASTHMA
     Dosage: UNK UNK, QD
  2. RELVAR ELLIPTA [Suspect]
     Active Substance: FLUTICASONE FUROATE\VILANTEROL TRIFENATATE
     Indication: BRONCHITIS
     Dosage: UNK UNK, BID(AS NEEDE)
  3. NEOMYCIN. [Suspect]
     Active Substance: NEOMYCIN
     Indication: PRODUCT USED FOR UNKNOWN INDICATION
     Dosage: UNK

REACTIONS (6)
  - Breast cancer [Recovered/Resolved]
  - Skin discolouration [Not Recovered/Not Resolved]
  - Product use in unapproved indication [Unknown]
  - Ocular neoplasm [Unknown]
  - Product use issue [Unknown]
  - Product complaint [Unknown]

NARRATIVE: CASE EVENT DATE: 201909
